FAERS Safety Report 5448153-0 (Version None)
Quarter: 2007Q3

REPORT INFORMATION
  Report Type: 
  Country: None (occurrence: None)
  Receive Date: 20070905
  Receipt Date: 20070823
  Transmission Date: 20080115
  Serious: Yes (Hospitalization)
  Sender: FDA-Public Use
  Company Number: 100#03#2007-03205

PATIENT
  Age: 65 Year
  Sex: Female

DRUGS (7)
  1. CITALOPRAM HYDROBROMIDE [Suspect]
     Indication: ANXIETY
     Dosage: 10 MG, ONCE DAILY, ORAL
     Route: 048
     Dates: start: 20070606, end: 20070608
  2. CITALOPRAM HYDROBROMIDE [Suspect]
     Indication: EMOTIONAL DISORDER
     Dosage: 10 MG, ONCE DAILY, ORAL
     Route: 048
     Dates: start: 20070606, end: 20070608
  3. AMITRIPTYLINE HCL [Concomitant]
  4. ATENOLOL [Concomitant]
  5. BENDROFLUMETHIAZIDE                                (BENDROFLUMETHIAZID [Concomitant]
  6. LANSOPRAZOLE [Concomitant]
  7. METHOTREXATE [Concomitant]

REACTIONS (1)
  - DEEP VEIN THROMBOSIS [None]
